FAERS Safety Report 23711757 (Version 1)
Quarter: 2024Q2

REPORT INFORMATION
  Report Type: Report from Study
  Country: TH (occurrence: TH)
  Receive Date: 20240405
  Receipt Date: 20240405
  Transmission Date: 20240716
  Serious: Yes (Death, Other)
  Sender: FDA-Public Use
  Company Number: TH-UCBSA-2024016193

PATIENT

DRUGS (4)
  1. LEVETIRACETAM [Suspect]
     Active Substance: LEVETIRACETAM
     Indication: Status epilepticus
     Dosage: 20 MG/KG IN 100 ML OF 5% DEXTROSE WATER OVER THE COURSE OF 30 MIN/MEDIAN LOADING DOSAGE 1000 (500?20
     Route: 042
  2. LEVETIRACETAM [Suspect]
     Active Substance: LEVETIRACETAM
     Indication: Seizure
  3. LEVETIRACETAM [Suspect]
     Active Substance: LEVETIRACETAM
     Indication: Off label use
  4. DEXTROSE [Concomitant]
     Active Substance: DEXTROSE\DEXTROSE MONOHYDRATE
     Indication: Product used for unknown indication
     Dosage: 100 ML OF 5% DEXTROSE WATER OVER THE COURSE OF 30 MIN
     Route: 042

REACTIONS (4)
  - Death [Fatal]
  - Seizure [Unknown]
  - Drug ineffective [Unknown]
  - Off label use [Unknown]
